FAERS Safety Report 7244664-6 (Version None)
Quarter: 2011Q1

REPORT INFORMATION
  Report Type: 
  Country: None (occurrence: None)
  Receive Date: 20110125
  Receipt Date: 20101019
  Transmission Date: 20110831
  Serious: No
  Sender: FDA-Public Use
  Company Number: US-MYLANLABS-2010S1018642

PATIENT
  Age: 68 Year
  Sex: Female
  Weight: 68.04 kg

DRUGS (4)
  1. CELEBREX [Concomitant]
     Indication: ARTHRITIS
     Dates: start: 20000101
  2. SIMCOR /00848101/ [Concomitant]
     Indication: BLOOD CHOLESTEROL INCREASED
     Dates: start: 20080101
  3. CLONIDINE [Suspect]
     Indication: HYPERTENSION
     Dosage: CHANGED QW
     Route: 062
     Dates: start: 20100901
  4. NORVASC [Concomitant]
     Indication: HYPERTENSION

REACTIONS (2)
  - DRUG EFFECT DECREASED [None]
  - BLOOD PRESSURE INCREASED [None]
